FAERS Safety Report 7569759-9 (Version None)
Quarter: 2011Q2

REPORT INFORMATION
  Report Type: 
  Country: None (occurrence: None)
  Receive Date: 20110621
  Receipt Date: 20110621
  Transmission Date: 20111010
  Serious: No
  Sender: FDA-Public Use
  Company Number: None

PATIENT
  Age: 68 Year
  Sex: Female
  Weight: 59.4212 kg

DRUGS (1)
  1. ALPRAZOLAM [Suspect]
     Indication: NERVOUSNESS
     Dosage: .25 MG 1 DAILY
     Dates: start: 20110310, end: 20110410

REACTIONS (2)
  - OCULAR ICTERUS [None]
  - YELLOW SKIN [None]
